FAERS Safety Report 5048217-X (Version None)
Quarter: 2006Q2

REPORT INFORMATION
  Report Type: 
  Country: None (occurrence: None)
  Receive Date: 20060601
  Receipt Date: 20060215
  Transmission Date: 20061013
  Serious: No
  Sender: FDA-Public Use
  Company Number: 2006PV008722

PATIENT
  Age: 46 Year
  Sex: Female

DRUGS (1)
  1. BYETTA [Suspect]
     Indication: DRUG USE FOR UNKNOWN INDICATION
     Dosage: SEE IMAGE
     Route: 058
     Dates: start: 20060101

REACTIONS (5)
  - ASTHMA [None]
  - BLOOD GLUCOSE ABNORMAL [None]
  - INCREASED APPETITE [None]
  - NAUSEA [None]
  - WEIGHT INCREASED [None]
